FAERS Safety Report 5559722-1 (Version None)
Quarter: 2007Q4

REPORT INFORMATION
  Report Type: 
  Country: None (occurrence: None)
  Receive Date: 20071214
  Receipt Date: 20071009
  Transmission Date: 20080405
  Serious: No
  Sender: FDA-Public Use
  Company Number: US-ABBOTT-07P-163-0420693-00

PATIENT
  Sex: Female
  Weight: 52.21 kg

DRUGS (3)
  1. HUMIRA [Suspect]
     Indication: CROHN'S DISEASE
     Route: 058
     Dates: start: 20071009
  2. TRAMADOL HCL [Concomitant]
     Indication: PAIN
     Route: 048
  3. UNKNOWN BIRTHCONTROL [Concomitant]
     Indication: CONTRACEPTION
     Route: 048

REACTIONS (1)
  - ACCIDENTAL EXPOSURE [None]
